FAERS Safety Report 6999260-2 (Version None)
Quarter: 2010Q3

REPORT INFORMATION
  Report Type: 
  Country: None (occurrence: None)
  Receive Date: 20100920
  Receipt Date: 20100311
  Transmission Date: 20110219
  Serious: No
  Sender: FDA-Public Use
  Company Number: US-ASTRAZENECA-2010SE10933

PATIENT
  Age: 24401 Day
  Sex: Female

DRUGS (1)
  1. SEROQUEL XR [Suspect]
     Indication: BIPOLAR DISORDER
     Route: 048

REACTIONS (5)
  - ACCOMMODATION DISORDER [None]
  - CRYING [None]
  - DIARRHOEA [None]
  - NIGHTMARE [None]
  - VOMITING [None]
